FAERS Safety Report 17918255 (Version 1)
Quarter: 2020Q2

REPORT INFORMATION
  Report Type: Spontaneous
  Country: JP (occurrence: JP)
  Receive Date: 20200619
  Receipt Date: 20200619
  Transmission Date: 20200714
  Serious: Yes (Death)
  Sender: FDA-Public Use
  Company Number: JP-MALLINCKRODT-T202002765

PATIENT
  Age: 84 Year
  Sex: Female

DRUGS (1)
  1. INOFLO [Suspect]
     Active Substance: NITRIC OXIDE
     Indication: PNEUMONIA FUNGAL
     Dosage: UNK (INHALATION)
     Route: 055
     Dates: start: 20200521, end: 20200525

REACTIONS (3)
  - Product use in unapproved indication [Unknown]
  - Cardiac failure [Fatal]
  - Product use issue [Unknown]

NARRATIVE: CASE EVENT DATE: 20200521
